FAERS Safety Report 20540499 (Version 1)
Quarter: 2022Q1

REPORT INFORMATION
  Report Type: Spontaneous
  Country: CN (occurrence: CN)
  Receive Date: 20220302
  Receipt Date: 20220302
  Transmission Date: 20220423
  Serious: Yes (Life-Threatening)
  Sender: FDA-Public Use
  Company Number: CN-GRUNENTHAL-2021-271720

PATIENT
  Age: 57 Year
  Sex: Male
  Weight: 62.5 kg

DRUGS (1)
  1. TRAMADOL HYDROCHLORIDE [Suspect]
     Active Substance: TRAMADOL HYDROCHLORIDE
     Indication: Wound complication
     Dosage: 100 MILLIGRAM, 1/DAY
     Route: 030
     Dates: start: 20211109, end: 20211109

REACTIONS (5)
  - Pallor [Recovered/Resolved]
  - Blood pressure decreased [Recovered/Resolved]
  - Dizziness [Recovered/Resolved]
  - Hyperhidrosis [Recovered/Resolved]
  - Palpitations [Recovered/Resolved]

NARRATIVE: CASE EVENT DATE: 20211109
